FAERS Safety Report 23342548 (Version 1)
Quarter: 2023Q4

REPORT INFORMATION
  Report Type: Spontaneous
  Country: US (occurrence: US)
  Receive Date: 20231227
  Receipt Date: 20231227
  Transmission Date: 20240109
  Serious: Yes (Other)
  Sender: FDA-Public Use
  Company Number: US-SUN PHARMACEUTICAL INDUSTRIES LTD-2023R1-425415

PATIENT
  Age: 35 Year
  Sex: Female

DRUGS (1)
  1. PROPYLTHIOURACIL [Suspect]
     Active Substance: PROPYLTHIOURACIL
     Indication: Hyperthyroidism
     Dosage: 50 MILLIGRAM, BID
     Route: 065

REACTIONS (3)
  - Goitre [Unknown]
  - Therapeutic response decreased [Unknown]
  - Tremor [Unknown]
